FAERS Safety Report 7641752-7 (Version None)
Quarter: 2011Q3

REPORT INFORMATION
  Report Type: 
  Country: None (occurrence: None)
  Receive Date: 20110727
  Receipt Date: 20110727
  Transmission Date: 20111222
  Serious: Yes (Hospitalization)
  Sender: FDA-Public Use
  Company Number: None

PATIENT
  Sex: Female
  Weight: 43.5 kg

DRUGS (18)
  1. DOXORUBICIN HYDROCHLORIDE [Suspect]
     Dosage: 101 MG
     Dates: end: 20110614
  2. THIOGUANINE [Suspect]
     Dosage: 1120 MG
     Dates: end: 20110718
  3. CYTARABINE [Suspect]
     Dosage: 800 MG
     Dates: end: 20110715
  4. MARINOL [Concomitant]
  5. ONCASPAR [Suspect]
     Dosage: 168.75 MG
     Dates: end: 20110603
  6. CYCLOPHOSPHAMIDE [Suspect]
     Dosage: 1330 MG
     Dates: end: 20110705
  7. VERSED [Concomitant]
  8. ERWINIA ASPARAGINASE [Suspect]
     Dosage: 237000 IU
     Dates: end: 20110718
  9. BACTRIM [Concomitant]
  10. TYLENOL-500 [Concomitant]
  11. FENTANYL [Concomitant]
  12. PREVACID [Concomitant]
  13. REGLAN [Concomitant]
  14. DEXAMETHASONE [Suspect]
     Dosage: 189 MG
     Dates: end: 20110620
  15. ZOFRAN [Concomitant]
  16. VINCRISTINE SULFATE [Suspect]
     Dosage: 8 MG
     Dates: end: 20110718
  17. METHOTREXATE [Suspect]
     Dosage: 45 MG
     Route: 037
     Dates: end: 20110531
  18. KYTRIL [Concomitant]

REACTIONS (8)
  - DRUG HYPERSENSITIVITY [None]
  - ANGIOEDEMA [None]
  - HEADACHE [None]
  - ANAEMIA [None]
  - THROMBOCYTOPENIA [None]
  - DYSARTHRIA [None]
  - DYSPHAGIA [None]
  - CEREBRAL INFARCTION [None]
